FAERS Safety Report 6816785-0 (Version None)
Quarter: 2010Q3

REPORT INFORMATION
  Report Type: 
  Country: None (occurrence: None)
  Receive Date: 20100706
  Receipt Date: 20100701
  Transmission Date: 20110219
  Serious: Yes (Life-Threatening, Other)
  Sender: FDA-Public Use
  Company Number: PHHY2010US39873

PATIENT
  Sex: Female

DRUGS (7)
  1. VALTURNA [Suspect]
  2. AVAPRO [Suspect]
  3. COZAAR [Suspect]
  4. HYZAAR [Suspect]
  5. VALIUM [Concomitant]
  6. PREVACID [Concomitant]
  7. FUROSEMIDE [Concomitant]

REACTIONS (11)
  - ABDOMINAL DISCOMFORT [None]
  - CSF SHUNT REMOVAL [None]
  - DIARRHOEA [None]
  - DRUG HYPERSENSITIVITY [None]
  - FATIGUE [None]
  - FEELING ABNORMAL [None]
  - HEADACHE [None]
  - HYPERTENSION [None]
  - INTRACRANIAL HYPOTENSION [None]
  - PALPITATIONS [None]
  - WEIGHT INCREASED [None]
